FAERS Safety Report 4392647-6 (Version None)
Quarter: 2004Q3

REPORT INFORMATION
  Report Type: 
  Country: None (occurrence: None)
  Receive Date: 20040702
  Receipt Date: 20040702
  Transmission Date: 20050211
  Serious: Yes (Other)
  Sender: FDA-Public Use
  Company Number: 2004UW05646

PATIENT
  Age: 46 Year
  Sex: Female

DRUGS (5)
  1. CRESTOR [Suspect]
     Dosage: 10 MG QD PO
     Route: 048
  2. SYNTHROID [Concomitant]
  3. XANAX [Concomitant]
  4. DARVOCET [Concomitant]
  5. ZELNORM [Concomitant]

REACTIONS (3)
  - DIARRHOEA [None]
  - EMOTIONAL DISORDER [None]
  - MUSCLE CRAMP [None]
